FAERS Safety Report 8052257-6 (Version None)
Quarter: 2012Q1

REPORT INFORMATION
  Report Type: 
  Country: None (occurrence: None)
  Receive Date: 20120118
  Receipt Date: 20120111
  Transmission Date: 20120608
  Serious: Yes (Death, Hospitalization)
  Sender: FDA-Public Use
  Company Number: CA-JNJFOC-20120105145

PATIENT
  Sex: Female
  Weight: 38 kg

DRUGS (1)
  1. REMICADE [Suspect]
     Indication: RHEUMATOID ARTHRITIS
     Route: 042
     Dates: start: 20061123, end: 20111123

REACTIONS (3)
  - BRONCHITIS [None]
  - LARYNGITIS [None]
  - DEATH [None]
